FAERS Safety Report 25996797 (Version 2)
Quarter: 2025Q4

REPORT INFORMATION
  Report Type: Spontaneous
  Country: EU (occurrence: EU)
  Receive Date: 20251104
  Receipt Date: 20251113
  Transmission Date: 20260117
  Serious: Yes (Disabling, Other)
  Sender: MYLAN
  Company Number: EU-SA-2025SA303608

PATIENT
  Age: 53 Year
  Sex: Female

DRUGS (108)
  1. GABAPENTIN [Suspect]
     Active Substance: GABAPENTIN
     Indication: Product used for unknown indication
     Dosage: UNK
  2. GABAPENTIN [Suspect]
     Active Substance: GABAPENTIN
     Dosage: UNK
     Route: 065
  3. GABAPENTIN [Suspect]
     Active Substance: GABAPENTIN
     Dosage: UNK
     Route: 065
  4. GABAPENTIN [Suspect]
     Active Substance: GABAPENTIN
     Dosage: UNK
  5. CHLORMADINONE ACETATE [Suspect]
     Active Substance: CHLORMADINONE ACETATE
     Indication: Product used for unknown indication
     Dosage: 10 MILLIGRAM
  6. CHLORMADINONE ACETATE [Suspect]
     Active Substance: CHLORMADINONE ACETATE
     Dosage: 10 MILLIGRAM
  7. CHLORMADINONE ACETATE [Suspect]
     Active Substance: CHLORMADINONE ACETATE
     Dosage: 10 MILLIGRAM
     Route: 065
  8. CHLORMADINONE ACETATE [Suspect]
     Active Substance: CHLORMADINONE ACETATE
     Dosage: 10 MILLIGRAM
     Route: 065
  9. CHLORMADINONE ACETATE [Suspect]
     Active Substance: CHLORMADINONE ACETATE
     Dosage: 10 MILLIGRAM
  10. CHLORMADINONE ACETATE [Suspect]
     Active Substance: CHLORMADINONE ACETATE
     Dosage: 10 MILLIGRAM
  11. CHLORMADINONE ACETATE [Suspect]
     Active Substance: CHLORMADINONE ACETATE
     Dosage: 10 MILLIGRAM
     Route: 065
  12. CHLORMADINONE ACETATE [Suspect]
     Active Substance: CHLORMADINONE ACETATE
     Dosage: 10 MILLIGRAM
     Route: 065
  13. CHLORMADINONE ACETATE [Suspect]
     Active Substance: CHLORMADINONE ACETATE
     Indication: Product used for unknown indication
     Dosage: 10 MILLIGRAM (10 MG, 20 DAYS/MONTH)
  14. CHLORMADINONE ACETATE [Suspect]
     Active Substance: CHLORMADINONE ACETATE
     Dosage: 10 MILLIGRAM (10 MG, 20 DAYS/MONTH)
  15. CHLORMADINONE ACETATE [Suspect]
     Active Substance: CHLORMADINONE ACETATE
     Dosage: 10 MILLIGRAM (10 MG, 20 DAYS/MONTH)
     Route: 065
  16. CHLORMADINONE ACETATE [Suspect]
     Active Substance: CHLORMADINONE ACETATE
     Dosage: 10 MILLIGRAM (10 MG, 20 DAYS/MONTH)
     Route: 065
  17. CHLORMADINONE ACETATE [Suspect]
     Active Substance: CHLORMADINONE ACETATE
     Dosage: 10 MILLIGRAM
  18. CHLORMADINONE ACETATE [Suspect]
     Active Substance: CHLORMADINONE ACETATE
     Dosage: 10 MILLIGRAM
  19. CHLORMADINONE ACETATE [Suspect]
     Active Substance: CHLORMADINONE ACETATE
     Dosage: 10 MILLIGRAM
     Route: 065
  20. CHLORMADINONE ACETATE [Suspect]
     Active Substance: CHLORMADINONE ACETATE
     Dosage: 10 MILLIGRAM
     Route: 065
  21. CHLORMADINONE ACETATE [Suspect]
     Active Substance: CHLORMADINONE ACETATE
     Dosage: 10 MILLIGRAM (10 MG, 20 DAYS/MONTH)
     Route: 065
  22. CHLORMADINONE ACETATE [Suspect]
     Active Substance: CHLORMADINONE ACETATE
     Dosage: 10 MILLIGRAM (10 MG, 20 DAYS/MONTH)
  23. CHLORMADINONE ACETATE [Suspect]
     Active Substance: CHLORMADINONE ACETATE
     Dosage: 10 MILLIGRAM (10 MG, 20 DAYS/MONTH)
  24. CHLORMADINONE ACETATE [Suspect]
     Active Substance: CHLORMADINONE ACETATE
     Dosage: 10 MILLIGRAM (10 MG, 20 DAYS/MONTH)
     Route: 065
  25. CHLORMADINONE ACETATE [Suspect]
     Active Substance: CHLORMADINONE ACETATE
     Dosage: 10 MILLIGRAM
  26. CHLORMADINONE ACETATE [Suspect]
     Active Substance: CHLORMADINONE ACETATE
     Dosage: 10 MILLIGRAM
  27. CHLORMADINONE ACETATE [Suspect]
     Active Substance: CHLORMADINONE ACETATE
     Dosage: 10 MILLIGRAM
     Route: 065
  28. CHLORMADINONE ACETATE [Suspect]
     Active Substance: CHLORMADINONE ACETATE
     Dosage: 10 MILLIGRAM
     Route: 065
  29. CHLORMADINONE ACETATE [Suspect]
     Active Substance: CHLORMADINONE ACETATE
     Dosage: 10 MILLIGRAM
  30. CHLORMADINONE ACETATE [Suspect]
     Active Substance: CHLORMADINONE ACETATE
     Dosage: 10 MILLIGRAM
  31. CHLORMADINONE ACETATE [Suspect]
     Active Substance: CHLORMADINONE ACETATE
     Dosage: 10 MILLIGRAM
     Route: 065
  32. CHLORMADINONE ACETATE [Suspect]
     Active Substance: CHLORMADINONE ACETATE
     Dosage: 10 MILLIGRAM
     Route: 065
  33. CHLORMADINONE ACETATE [Suspect]
     Active Substance: CHLORMADINONE ACETATE
     Dosage: 10 MILLIGRAM
  34. CHLORMADINONE ACETATE [Suspect]
     Active Substance: CHLORMADINONE ACETATE
     Dosage: 10 MILLIGRAM
     Route: 065
  35. CHLORMADINONE ACETATE [Suspect]
     Active Substance: CHLORMADINONE ACETATE
     Dosage: 10 MILLIGRAM
  36. CHLORMADINONE ACETATE [Suspect]
     Active Substance: CHLORMADINONE ACETATE
     Dosage: 10 MILLIGRAM
     Route: 065
  37. CHLORMADINONE ACETATE [Suspect]
     Active Substance: CHLORMADINONE ACETATE
     Dosage: 10 MILLIGRAM
     Route: 065
  38. CHLORMADINONE ACETATE [Suspect]
     Active Substance: CHLORMADINONE ACETATE
     Dosage: 10 MILLIGRAM
  39. CHLORMADINONE ACETATE [Suspect]
     Active Substance: CHLORMADINONE ACETATE
     Dosage: 10 MILLIGRAM
  40. CHLORMADINONE ACETATE [Suspect]
     Active Substance: CHLORMADINONE ACETATE
     Dosage: 10 MILLIGRAM
     Route: 065
  41. CHLORMADINONE ACETATE [Suspect]
     Active Substance: CHLORMADINONE ACETATE
     Dosage: UNK
  42. CHLORMADINONE ACETATE [Suspect]
     Active Substance: CHLORMADINONE ACETATE
     Dosage: UNK
  43. CHLORMADINONE ACETATE [Suspect]
     Active Substance: CHLORMADINONE ACETATE
     Dosage: UNK
     Route: 065
  44. CHLORMADINONE ACETATE [Suspect]
     Active Substance: CHLORMADINONE ACETATE
     Dosage: UNK
     Route: 065
  45. CHLORMADINONE ACETATE [Suspect]
     Active Substance: CHLORMADINONE ACETATE
     Dosage: UNK (20 DAYS/MONTH)
  46. CHLORMADINONE ACETATE [Suspect]
     Active Substance: CHLORMADINONE ACETATE
     Dosage: UNK (20 DAYS/MONTH)
  47. CHLORMADINONE ACETATE [Suspect]
     Active Substance: CHLORMADINONE ACETATE
     Dosage: UNK (20 DAYS/MONTH)
     Route: 065
  48. CHLORMADINONE ACETATE [Suspect]
     Active Substance: CHLORMADINONE ACETATE
     Dosage: UNK (20 DAYS/MONTH)
     Route: 065
  49. CHLORMADINONE ACETATE [Suspect]
     Active Substance: CHLORMADINONE ACETATE
     Dosage: UNK (20 DAYS/MONTH)
  50. CHLORMADINONE ACETATE [Suspect]
     Active Substance: CHLORMADINONE ACETATE
     Dosage: UNK (20 DAYS/MONTH)
     Route: 065
  51. CHLORMADINONE ACETATE [Suspect]
     Active Substance: CHLORMADINONE ACETATE
     Dosage: UNK (20 DAYS/MONTH)
  52. CHLORMADINONE ACETATE [Suspect]
     Active Substance: CHLORMADINONE ACETATE
     Dosage: UNK (20 DAYS/MONTH)
     Route: 065
  53. CHLORMADINONE ACETATE [Suspect]
     Active Substance: CHLORMADINONE ACETATE
     Dosage: UNK
  54. CHLORMADINONE ACETATE [Suspect]
     Active Substance: CHLORMADINONE ACETATE
     Dosage: UNK
  55. CHLORMADINONE ACETATE [Suspect]
     Active Substance: CHLORMADINONE ACETATE
     Dosage: UNK
     Route: 065
  56. CHLORMADINONE ACETATE [Suspect]
     Active Substance: CHLORMADINONE ACETATE
     Dosage: UNK
     Route: 065
  57. CHLORMADINONE ACETATE [Suspect]
     Active Substance: CHLORMADINONE ACETATE
     Dosage: 10 MILLIGRAM
  58. CHLORMADINONE ACETATE [Suspect]
     Active Substance: CHLORMADINONE ACETATE
     Dosage: 10 MILLIGRAM
  59. CHLORMADINONE ACETATE [Suspect]
     Active Substance: CHLORMADINONE ACETATE
     Dosage: 10 MILLIGRAM
     Route: 065
  60. CHLORMADINONE ACETATE [Suspect]
     Active Substance: CHLORMADINONE ACETATE
     Dosage: 10 MILLIGRAM
     Route: 065
  61. CHLORMADINONE ACETATE [Suspect]
     Active Substance: CHLORMADINONE ACETATE
     Dosage: UNK
  62. CHLORMADINONE ACETATE [Suspect]
     Active Substance: CHLORMADINONE ACETATE
     Dosage: UNK
  63. CHLORMADINONE ACETATE [Suspect]
     Active Substance: CHLORMADINONE ACETATE
     Dosage: UNK
     Route: 065
  64. CHLORMADINONE ACETATE [Suspect]
     Active Substance: CHLORMADINONE ACETATE
     Dosage: UNK
     Route: 065
  65. CHLORMADINONE ACETATE [Suspect]
     Active Substance: CHLORMADINONE ACETATE
     Dosage: 10 MILLIGRAM
     Dates: start: 20191031, end: 20200102
  66. CHLORMADINONE ACETATE [Suspect]
     Active Substance: CHLORMADINONE ACETATE
     Dosage: 10 MILLIGRAM
     Dates: start: 20191031, end: 20200102
  67. CHLORMADINONE ACETATE [Suspect]
     Active Substance: CHLORMADINONE ACETATE
     Dosage: 10 MILLIGRAM
     Route: 065
     Dates: start: 20191031, end: 20200102
  68. CHLORMADINONE ACETATE [Suspect]
     Active Substance: CHLORMADINONE ACETATE
     Dosage: 10 MILLIGRAM
     Route: 065
     Dates: start: 20191031, end: 20200102
  69. CHLORMADINONE ACETATE [Suspect]
     Active Substance: CHLORMADINONE ACETATE
     Indication: Product used for unknown indication
     Dosage: 10 MILLIGRAM
  70. CHLORMADINONE ACETATE [Suspect]
     Active Substance: CHLORMADINONE ACETATE
     Dosage: 10 MILLIGRAM
     Route: 065
  71. CHLORMADINONE ACETATE [Suspect]
     Active Substance: CHLORMADINONE ACETATE
     Dosage: 10 MILLIGRAM
     Route: 065
  72. CHLORMADINONE ACETATE [Suspect]
     Active Substance: CHLORMADINONE ACETATE
     Dosage: 10 MILLIGRAM
  73. TEGRETOL [Suspect]
     Active Substance: CARBAMAZEPINE
     Indication: Product used for unknown indication
     Dosage: 400 MILLIGRAM, BID (MORNING AND EVENING)
  74. TEGRETOL [Suspect]
     Active Substance: CARBAMAZEPINE
     Dosage: 400 MILLIGRAM, BID (MORNING AND EVENING)
  75. TEGRETOL [Suspect]
     Active Substance: CARBAMAZEPINE
     Dosage: 400 MILLIGRAM, BID (MORNING AND EVENING)
     Route: 065
  76. TEGRETOL [Suspect]
     Active Substance: CARBAMAZEPINE
     Dosage: 400 MILLIGRAM, BID (MORNING AND EVENING)
     Route: 065
  77. TEGRETOL [Suspect]
     Active Substance: CARBAMAZEPINE
     Dosage: 100 MILLIGRAM, Q8H (100 MG, TID)
  78. TEGRETOL [Suspect]
     Active Substance: CARBAMAZEPINE
     Dosage: 100 MILLIGRAM, Q8H (100 MG, TID)
  79. TEGRETOL [Suspect]
     Active Substance: CARBAMAZEPINE
     Dosage: 100 MILLIGRAM, Q8H (100 MG, TID)
     Route: 065
  80. TEGRETOL [Suspect]
     Active Substance: CARBAMAZEPINE
     Dosage: 100 MILLIGRAM, Q8H (100 MG, TID)
     Route: 065
  81. TEGRETOL [Suspect]
     Active Substance: CARBAMAZEPINE
     Dosage: 200 MILLIGRAM, Q8H (200 MG, TID)
  82. TEGRETOL [Suspect]
     Active Substance: CARBAMAZEPINE
     Dosage: 200 MILLIGRAM, Q8H (200 MG, TID)
     Route: 065
  83. TEGRETOL [Suspect]
     Active Substance: CARBAMAZEPINE
     Dosage: 200 MILLIGRAM, Q8H (200 MG, TID)
  84. TEGRETOL [Suspect]
     Active Substance: CARBAMAZEPINE
     Dosage: 200 MILLIGRAM, Q8H (200 MG, TID)
     Route: 065
  85. AMITRIPTYLINE HYDROCHLORIDE [Concomitant]
     Active Substance: AMITRIPTYLINE HYDROCHLORIDE
     Indication: Pain
     Dosage: UNK
  86. AMITRIPTYLINE HYDROCHLORIDE [Concomitant]
     Active Substance: AMITRIPTYLINE HYDROCHLORIDE
     Dosage: UNK
     Route: 065
  87. AMITRIPTYLINE HYDROCHLORIDE [Concomitant]
     Active Substance: AMITRIPTYLINE HYDROCHLORIDE
     Dosage: UNK
     Route: 065
  88. AMITRIPTYLINE HYDROCHLORIDE [Concomitant]
     Active Substance: AMITRIPTYLINE HYDROCHLORIDE
     Dosage: UNK
  89. ALPRAZOLAM [Concomitant]
     Active Substance: ALPRAZOLAM
     Dosage: UNK
  90. ALPRAZOLAM [Concomitant]
     Active Substance: ALPRAZOLAM
     Dosage: UNK
     Route: 065
  91. ALPRAZOLAM [Concomitant]
     Active Substance: ALPRAZOLAM
     Dosage: UNK
     Route: 065
  92. ALPRAZOLAM [Concomitant]
     Active Substance: ALPRAZOLAM
     Dosage: UNK
  93. IMOVANE [Concomitant]
     Active Substance: ZOPICLONE
     Dosage: UNK
  94. IMOVANE [Concomitant]
     Active Substance: ZOPICLONE
     Dosage: UNK
     Route: 065
  95. IMOVANE [Concomitant]
     Active Substance: ZOPICLONE
     Dosage: UNK
     Route: 065
  96. IMOVANE [Concomitant]
     Active Substance: ZOPICLONE
     Dosage: UNK
  97. TRILEPTAL [Concomitant]
     Active Substance: OXCARBAZEPINE
     Dosage: UNK
  98. TRILEPTAL [Concomitant]
     Active Substance: OXCARBAZEPINE
     Dosage: UNK
     Route: 065
  99. TRILEPTAL [Concomitant]
     Active Substance: OXCARBAZEPINE
     Dosage: UNK
     Route: 065
  100. TRILEPTAL [Concomitant]
     Active Substance: OXCARBAZEPINE
     Dosage: UNK
  101. RIVOTRIL [Concomitant]
     Active Substance: CLONAZEPAM
     Dosage: UNK
  102. RIVOTRIL [Concomitant]
     Active Substance: CLONAZEPAM
     Dosage: UNK
     Route: 065
  103. RIVOTRIL [Concomitant]
     Active Substance: CLONAZEPAM
     Dosage: UNK
     Route: 065
  104. RIVOTRIL [Concomitant]
     Active Substance: CLONAZEPAM
     Dosage: UNK
  105. PREDNISONE [Concomitant]
     Active Substance: PREDNISONE
     Dosage: UNK
  106. PREDNISONE [Concomitant]
     Active Substance: PREDNISONE
     Dosage: UNK
     Route: 065
  107. PREDNISONE [Concomitant]
     Active Substance: PREDNISONE
     Dosage: UNK
     Route: 065
  108. PREDNISONE [Concomitant]
     Active Substance: PREDNISONE
     Dosage: UNK

REACTIONS (25)
  - Neurological symptom [Unknown]
  - Seizure [Recovering/Resolving]
  - Brain oedema [Unknown]
  - Meningioma [Unknown]
  - Cognitive disorder [Unknown]
  - Sensory loss [Unknown]
  - Memory impairment [Unknown]
  - Paraesthesia [Unknown]
  - Hypoaesthesia [Unknown]
  - Hypoacusis [Unknown]
  - Affective disorder [Unknown]
  - Affect lability [Unknown]
  - Neuralgia [Unknown]
  - Eye pain [Unknown]
  - Epistaxis [Unknown]
  - Aphasia [Unknown]
  - Psychomotor retardation [Unknown]
  - Trigeminal neuralgia [Unknown]
  - Somnolence [Unknown]
  - Tinnitus [Unknown]
  - Asthenia [Unknown]
  - Depression [Unknown]
  - Weight increased [Unknown]
  - Diplopia [Unknown]
  - Headache [Unknown]
